FAERS Safety Report 7299342-4 (Version None)
Quarter: 2011Q1

REPORT INFORMATION
  Report Type: 
  Country: None (occurrence: None)
  Receive Date: 20110217
  Receipt Date: 20110214
  Transmission Date: 20110831
  Serious: Yes (Hospitalization, Congenital Anomaly)
  Sender: FDA-Public Use
  Company Number: A0882512A

PATIENT
  Sex: Male
  Weight: 2.8 kg

DRUGS (2)
  1. PRENATAL VITAMINS [Concomitant]
  2. PAXIL [Suspect]
     Indication: MAJOR DEPRESSION
     Route: 064

REACTIONS (3)
  - COARCTATION OF THE AORTA [None]
  - URETHRAL ATRESIA [None]
  - DRUG EXPOSURE DURING PREGNANCY [None]
